FAERS Safety Report 7546468-3 (Version None)
Quarter: 2011Q2

REPORT INFORMATION
  Report Type: 
  Country: None (occurrence: None)
  Receive Date: 20110524
  Receipt Date: 20110303
  Transmission Date: 20111010
  Serious: No
  Sender: FDA-Public Use
  Company Number: 028665

PATIENT
  Sex: Female
  Weight: 117.9 kg

DRUGS (3)
  1. CIMZIA [Suspect]
     Indication: CROHN'S DISEASE
     Dosage: (400 MG 1X/2 WEEKS, LAST DOSE 21/FEB/2011 SUBCUTANEOUS)
     Route: 058
     Dates: start: 20110131
  2. IBUPROFEN [Concomitant]
  3. ZANTAC /00550802/ [Concomitant]

REACTIONS (3)
  - ARTHRALGIA [None]
  - VIRAL INFECTION [None]
  - NODULE [None]
